FAERS Safety Report 23111079 (Version 1)
Quarter: 2023Q4

REPORT INFORMATION
  Report Type: Spontaneous
  Country: PL (occurrence: PL)
  Receive Date: 20231026
  Receipt Date: 20231026
  Transmission Date: 20240110
  Serious: Yes (Other)
  Sender: FDA-Public Use
  Company Number: PL-JAZZ-2021-PL-001306

PATIENT
  Age: 3 Year
  Sex: Female
  Weight: 16.3 kg

DRUGS (3)
  1. DEFITELIO [Suspect]
     Active Substance: DEFIBROTIDE SODIUM
     Indication: Venoocclusive disease
     Dosage: 25 MILLIGRAM/KILOGRAM/DAY
  2. PROTHROMPLEX NF [Concomitant]
     Active Substance: ANTITHROMBIN III HUMAN\COAGULATION FACTOR IX HUMAN\COAGULATION FACTOR VII HUMAN\COAGULATION FACTOR X
     Indication: Product used for unknown indication
     Dosage: 600U
  3. PENTOXIFYLLINE [Concomitant]
     Active Substance: PENTOXIFYLLINE
     Indication: Product used for unknown indication
     Dosage: 0.6 MG/KG/H
     Route: 042

REACTIONS (3)
  - Venoocclusive disease [Recovering/Resolving]
  - Disease progression [Recovering/Resolving]
  - Off label use [Unknown]
